FAERS Safety Report 20446532 (Version 4)
Quarter: 2022Q1

REPORT INFORMATION
  Report Type: Report from Study
  Country: JP (occurrence: JP)
  Receive Date: 20220208
  Receipt Date: 20220301
  Transmission Date: 20220423
  Serious: Yes (Hospitalization, Other)
  Sender: FDA-Public Use
  Company Number: JP-BRISTOL-MYERS SQUIBB COMPANY-BMS-2021-086554

PATIENT
  Age: 51 Year
  Sex: Male
  Weight: 83.3 kg

DRUGS (15)
  1. BMS-986310 [Suspect]
     Active Substance: BMS-986310
     Indication: Pancreatic carcinoma
     Dosage: 40 MILLIGRAM, QD
     Route: 048
     Dates: start: 20210811, end: 20220105
  2. NIVOLUMAB [Suspect]
     Active Substance: NIVOLUMAB
     Indication: Pancreatic carcinoma
     Dosage: 480 MILLIGRAM, Q4WK
     Route: 042
     Dates: start: 20210811, end: 20220105
  3. GEMCITABINE [Suspect]
     Active Substance: GEMCITABINE
     Indication: Pancreatic carcinoma
     Dosage: 2000 MILLIGRAM,3 WEEKS ON/ 1 WEEK OFF
     Route: 042
     Dates: start: 20210811, end: 20220105
  4. PACLITAXEL [Suspect]
     Active Substance: PACLITAXEL
     Indication: Pancreatic carcinoma
     Dosage: 250 MILLIGRAM,3 WEEKS ON/ 1 WEEK OFF
     Route: 042
     Dates: start: 20210811, end: 20220105
  5. VONOPRAZAN FUMARATE [Concomitant]
     Active Substance: VONOPRAZAN FUMARATE
     Indication: Duodenal ulcer
     Dosage: 20 MILLIGRAM, QD
     Route: 048
     Dates: start: 20210813
  6. ALOXI [Concomitant]
     Active Substance: PALONOSETRON HYDROCHLORIDE
     Indication: Prophylaxis of nausea and vomiting
     Dosage: 0.75MG/50ML
     Route: 042
     Dates: start: 20210811, end: 20211222
  7. DEXAMETHASONE [Concomitant]
     Active Substance: DEXAMETHASONE
     Indication: Prophylaxis of nausea and vomiting
     Dosage: UNKNOWN
     Route: 042
     Dates: start: 20210811, end: 20211222
  8. HEPARINOID [Concomitant]
     Indication: Eczema
     Dosage: UNKNOWN, Q12H
     Route: 061
     Dates: start: 20210818
  9. MOMETASONE [Concomitant]
     Active Substance: MOMETASONE
     Indication: Eczema
     Dosage: UNSPECIFIED DOSE,Q12H
     Route: 061
     Dates: start: 20210818
  10. CLOBETASOL [Concomitant]
     Active Substance: CLOBETASOL
     Indication: Eczema
     Dosage: UNKNOWN, Q12H
     Route: 061
     Dates: start: 20210818
  11. FEXOFENADINE HYDROCHLORIDE [Concomitant]
     Active Substance: FEXOFENADINE HYDROCHLORIDE
     Indication: Eczema
     Dosage: 60 MILLIGRAM, Q12H
     Route: 048
     Dates: start: 20211117
  12. METOCLOPRAMIDE [Concomitant]
     Active Substance: METOCLOPRAMIDE
     Indication: Nausea
     Dosage: 5 MILLIGRAM, PRN
     Route: 048
     Dates: start: 20210921
  13. MAGNESIUM OXIDE [Concomitant]
     Active Substance: MAGNESIUM OXIDE
     Indication: Constipation
     Dosage: 330 MILLIGRAM,PM
     Route: 048
     Dates: start: 20210824
  14. SENNOSIDES A AND B [Concomitant]
     Active Substance: SENNOSIDES A AND B
     Indication: Constipation
     Dosage: 12 MILLIGRAM, PRN
     Route: 048
     Dates: start: 20210915
  15. PROCHLORPERAZINE MALEATE [Concomitant]
     Active Substance: PROCHLORPERAZINE MALEATE
     Indication: Nausea
     Dosage: 5 MILLIGRAM, PRN
     Route: 048
     Dates: start: 20210906

REACTIONS (4)
  - Fatigue [Recovering/Resolving]
  - Anaemia [Recovering/Resolving]
  - Cholangitis [Recovering/Resolving]
  - Liver abscess [Recovering/Resolving]

NARRATIVE: CASE EVENT DATE: 20210825
